FAERS Safety Report 5877044-6 (Version None)
Quarter: 2008Q3

REPORT INFORMATION
  Report Type: 
  Country: None (occurrence: None)
  Receive Date: 20080910
  Receipt Date: 20080902
  Transmission Date: 20090109
  Serious: Yes (Disabling, Other)
  Sender: FDA-Public Use
  Company Number: PHEH2008US07638

PATIENT
  Sex: Female

DRUGS (5)
  1. RECLAST [Suspect]
     Indication: OSTEOPOROSIS
     Dosage: UNK
     Dates: start: 20080319
  2. ASPIRIN [Concomitant]
     Dosage: UNK
     Route: 048
  3. PREDNISONE TAB [Concomitant]
     Dosage: 5 MG, QD
     Route: 048
  4. AMBIEN [Concomitant]
     Indication: INSOMNIA
     Dosage: 10 MG, UNK
  5. CITRACAL [Concomitant]

REACTIONS (10)
  - ANOREXIA [None]
  - ARTHRALGIA [None]
  - GROIN PAIN [None]
  - IMPAIRED SELF-CARE [None]
  - MUSCULOSKELETAL PAIN [None]
  - NAUSEA [None]
  - OEDEMA PERIPHERAL [None]
  - PAIN IN EXTREMITY [None]
  - RETCHING [None]
  - VOMITING [None]
